FAERS Safety Report 19017973 (Version 1)
Quarter: 2021Q1

REPORT INFORMATION
  Report Type: Spontaneous
  Country: US (occurrence: US)
  Receive Date: 20210317
  Receipt Date: 20210317
  Transmission Date: 20210420
  Serious: No
  Sender: FDA-Public Use
  Company Number: US-ELI_LILLY_AND_COMPANY-US202103003601

PATIENT
  Age: 65 Year
  Sex: Male

DRUGS (4)
  1. TADALAFIL. [Suspect]
     Active Substance: TADALAFIL
     Indication: PRODUCT USED FOR UNKNOWN INDICATION
     Dosage: UNK, UNKNOWN
     Route: 065
  2. VASCEPA [Suspect]
     Active Substance: ICOSAPENT ETHYL
     Indication: BLOOD TRIGLYCERIDES INCREASED
     Dosage: 1 DOSAGE FORM, BID
     Route: 065
  3. OMEPRAZOLE. [Concomitant]
     Active Substance: OMEPRAZOLE
     Indication: PRODUCT USED FOR UNKNOWN INDICATION
  4. VIAGRA [Suspect]
     Active Substance: SILDENAFIL CITRATE
     Indication: PRODUCT USED FOR UNKNOWN INDICATION
     Dosage: UNK, UNKNOWN
     Route: 065

REACTIONS (8)
  - Chromaturia [Recovering/Resolving]
  - Dry mouth [Recovering/Resolving]
  - Asthenia [Recovering/Resolving]
  - Polydipsia [Recovering/Resolving]
  - Dysgeusia [Recovering/Resolving]
  - Constipation [Recovering/Resolving]
  - Gastrooesophageal reflux disease [Recovering/Resolving]
  - Nausea [Recovering/Resolving]
